FAERS Safety Report 6665958-9 (Version None)
Quarter: 2010Q1

REPORT INFORMATION
  Report Type: 
  Country: None (occurrence: None)
  Receive Date: 20100330
  Receipt Date: 20100317
  Transmission Date: 20100710
  Serious: Yes (Hospitalization)
  Sender: FDA-Public Use
  Company Number: 537067

PATIENT
  Age: 56 Year
  Sex: Male
  Weight: 95.25 kg

DRUGS (6)
  1. AMIDATE [Suspect]
     Indication: DRUG USE FOR UNKNOWN INDICATION
     Dates: start: 20090826, end: 20090826
  2. FENTANYL CITRATE INJECTION (FENTANYL CITRATE) [Concomitant]
  3. PROPOFOL [Concomitant]
  4. VERSED [Concomitant]
  5. COREG [Concomitant]
  6. (INSULIN) [Concomitant]

REACTIONS (4)
  - ABASIA [None]
  - COMA [None]
  - MEMORY IMPAIRMENT [None]
  - PNEUMONIA ASPIRATION [None]
